FAERS Safety Report 4462315-0 (Version None)
Quarter: 2004Q3

REPORT INFORMATION
  Report Type: 
  Country: None (occurrence: None)
  Receive Date: 20040929
  Receipt Date: 20040601
  Transmission Date: 20050211
  Serious: Yes (Life-Threatening, Hospitalization)
  Sender: FDA-Public Use
  Company Number: US-BRISTOL-MYERS SQUIBB COMPANY-12600151

PATIENT
  Age: 61 Year
  Sex: Male
  Weight: 155 kg

DRUGS (4)
  1. ETOPOSIDE [Suspect]
     Indication: PROSTATE CANCER
     Dosage: 2 TABS AM AND 1 TAB PM 1ST CYCLE: 12APR-26APR04
     Route: 048
     Dates: start: 20040503, end: 20040509
  2. TAXOL [Suspect]
     Indication: PROSTATE CANCER
     Dosage: DOSING ON DAY 2 1ST DOSE: 13APR04 @375 MG
     Route: 042
     Dates: start: 20040504, end: 20040504
  3. ESTRAMUSTINE [Suspect]
     Indication: PROSTATE CANCER
     Dosage: 1ST CYCLE: 12APR-26APR04
     Route: 048
     Dates: start: 20040503, end: 20040509
  4. LUPRON [Suspect]
     Indication: PROSTATE CANCER
     Route: 058
     Dates: start: 20040326, end: 20040326

REACTIONS (1)
  - PULMONARY EMBOLISM [None]
